FAERS Safety Report 8840081 (Version 1)
Quarter: 2012Q4

REPORT INFORMATION
  Report Type: 
  Country: BR (occurrence: BR)
  Receive Date: 20121015
  Receipt Date: 20121015
  Transmission Date: 20130627
  Serious: Yes (Hospitalization)
  Sender: FDA-Public Use
  Company Number: BR-ASTRAZENECA-2012SE15737

PATIENT
  Age: 69 Year
  Sex: Male

DRUGS (5)
  1. CRESTOR [Suspect]
     Route: 048
     Dates: start: 201102
  2. CRESTOR [Suspect]
     Route: 048
  3. UNKNOWN [Concomitant]
     Indication: HYPERTENSION
     Dates: start: 201202
  4. SOMALGIN [Concomitant]
     Indication: ANTICOAGULANT THERAPY
     Dates: start: 201202
  5. CLOPIDOGREL [Concomitant]
     Dates: start: 201202

REACTIONS (1)
  - Peripheral vascular disorder [Recovering/Resolving]
